FAERS Safety Report 7587225-1 (Version None)
Quarter: 2011Q3

REPORT INFORMATION
  Report Type: 
  Country: None (occurrence: None)
  Receive Date: 20110701
  Receipt Date: 20110627
  Transmission Date: 20111222
  Serious: Yes (Other)
  Sender: FDA-Public Use
  Company Number: CA-ABBOTT-11P-028-0717637-00

PATIENT
  Sex: Female

DRUGS (2)
  1. DETROL LA [Suspect]
     Indication: HYPERTONIC BLADDER
     Dosage: 4 MG
     Route: 048
  2. SYNTHROID [Suspect]
     Indication: THYROID DISORDER
     Route: 065

REACTIONS (3)
  - HYPERTONIC BLADDER [None]
  - HYPERSENSITIVITY [None]
  - OROPHARYNGEAL BLISTERING [None]
